FAERS Safety Report 9430479 (Version 3)
Quarter: 2013Q3

REPORT INFORMATION
  Report Type: Spontaneous
  Country: JP (occurrence: JP)
  Receive Date: 20130730
  Receipt Date: 20130910
  Transmission Date: 20140515
  Serious: Yes (Other)
  Sender: FDA-Public Use
  Company Number: JP-GLAXOSMITHKLINE-B0911150A

PATIENT
  Sex: Female

DRUGS (6)
  1. ZANTAC [Suspect]
     Indication: PROPHYLAXIS
     Route: 042
     Dates: start: 200811, end: 200907
  2. ZANTAC [Suspect]
     Indication: PROPHYLAXIS
     Route: 042
     Dates: start: 201005, end: 201011
  3. DECADRON [Concomitant]
     Dosage: 16.5MG PER DAY
     Route: 065
  4. KYTRIL [Concomitant]
     Dosage: 3MG PER DAY
     Route: 065
  5. TAXOL [Concomitant]
     Dosage: 100MG PER DAY
     Route: 042
  6. PARAPLATIN [Concomitant]
     Dosage: 240MG PER DAY
     Route: 042

REACTIONS (6)
  - Laryngeal oedema [Recovered/Resolved]
  - Respiratory depression [Recovered/Resolved]
  - Abdominal pain upper [Recovered/Resolved]
  - Dysphonia [Recovered/Resolved]
  - Face oedema [Recovered/Resolved]
  - Blood pressure decreased [Recovered/Resolved]
